FAERS Safety Report 25882233 (Version 1)
Quarter: 2025Q4

REPORT INFORMATION
  Report Type: Spontaneous
  Country: CN (occurrence: CN)
  Receive Date: 20251006
  Receipt Date: 20251006
  Transmission Date: 20260118
  Serious: Yes (Hospitalization)
  Sender: ABBVIE
  Company Number: CN-ABBVIE-6487619

PATIENT
  Age: 26 Year
  Sex: Female

DRUGS (2)
  1. BOTULINUM TOXIN NOS [Suspect]
     Active Substance: BOTULINUM TOXIN NOS
     Indication: Product used for unknown indication
     Dosage: TIME INTERVAL: AS NECESSARY: 60 UNITS ON THE LEFT CERVICAL REGION
     Route: 065
  2. BOTULINUM TOXIN NOS [Suspect]
     Active Substance: BOTULINUM TOXIN NOS
     Indication: Product used for unknown indication
     Dosage: TIME INTERVAL: AS NECESSARY: 40 UNITS ON THE RIGHT CERVICAL REGION
     Route: 065

REACTIONS (1)
  - Brain oedema [Recovered/Resolved]
